FAERS Safety Report 21134872 (Version 1)
Quarter: 2022Q3

REPORT INFORMATION
  Report Type: Spontaneous
  Country: ES (occurrence: ES)
  Receive Date: 20220727
  Receipt Date: 20220727
  Transmission Date: 20221027
  Serious: Yes (Other)
  Sender: FDA-Public Use
  Company Number: ES-CELLTRION INC.-2022ES011726

PATIENT

DRUGS (1)
  1. RITUXIMAB [Suspect]
     Active Substance: RITUXIMAB
     Indication: Myasthenia gravis
     Dosage: 375 MG/M2, WEEKLY FOR FOUR CONSECUTIVE WEEKS

REACTIONS (5)
  - Progressive multifocal leukoencephalopathy [Unknown]
  - Myasthenia gravis [Unknown]
  - Therapy partial responder [Unknown]
  - Drug effective for unapproved indication [Unknown]
  - Off label use [Unknown]
